FAERS Safety Report 16431372 (Version 2)
Quarter: 2019Q3

REPORT INFORMATION
  Report Type: Report from Study
  Country: US (occurrence: US)
  Receive Date: 20190614
  Receipt Date: 20190726
  Transmission Date: 20191004
  Serious: Yes (Hospitalization)
  Sender: FDA-Public Use
  Company Number: PHEH2019US025025

PATIENT
  Sex: Male

DRUGS (1)
  1. GILENYA [Suspect]
     Active Substance: FINGOLIMOD HYDROCHLORIDE
     Indication: MULTIPLE SCLEROSIS
     Dosage: 0.5 MG, QD
     Route: 048
     Dates: start: 2017

REACTIONS (5)
  - Multiple sclerosis relapse [Unknown]
  - Gait disturbance [Recovering/Resolving]
  - Abdominal discomfort [Recovering/Resolving]
  - Dehydration [Recovering/Resolving]
  - Temperature intolerance [Unknown]
